FAERS Safety Report 17716038 (Version 1)
Quarter: 2020Q2

REPORT INFORMATION
  Report Type: Report from Study
  Country: None (occurrence: BR)
  Receive Date: 20200428
  Receipt Date: 20200428
  Transmission Date: 20200714
  Serious: Yes (Other)
  Sender: FDA-Public Use
  Company Number: BR-ABBVIE-20K-020-3379636-00

PATIENT
  Age: 62 Year
  Sex: Female

DRUGS (2)
  1. MUSCULARE [Concomitant]
     Indication: PRODUCT USED FOR UNKNOWN INDICATION
  2. HUMIRA [Suspect]
     Active Substance: ADALIMUMAB
     Indication: COLITIS ULCERATIVE
     Route: 058
     Dates: start: 20120101, end: 201910

REACTIONS (9)
  - Malaise [Unknown]
  - Visual impairment [Recovered/Resolved]
  - Nausea [Recovered/Resolved]
  - Visual impairment [Unknown]
  - Dizziness [Recovered/Resolved]
  - Nervousness [Unknown]
  - Vision blurred [Recovered/Resolved]
  - Colitis ulcerative [Unknown]
  - Colitis [Unknown]

NARRATIVE: CASE EVENT DATE: 201910
